FAERS Safety Report 6572611-9 (Version None)
Quarter: 2010Q1

REPORT INFORMATION
  Report Type: 
  Country: None (occurrence: None)
  Receive Date: 20100205
  Receipt Date: 20100202
  Transmission Date: 20100710
  Serious: Yes (Other)
  Sender: FDA-Public Use
  Company Number: CHPA2010US02398

PATIENT
  Age: 78 Year
  Sex: Female
  Weight: 72.562 kg

DRUGS (8)
  1. MYOFLEX ANALGESIC CREME (NCH) [Suspect]
     Indication: OSTEOARTHRITIS
     Dosage: UNK, UNK
     Route: 061
  2. ALOE VERA [Concomitant]
     Indication: OSTEOARTHRITIS
     Dosage: UNK, UNK
     Route: 061
  3. ALOE VERA [Concomitant]
  4. BABY ASPIRIN [Concomitant]
     Dosage: 1 DF, QD
     Route: 048
  5. FISH OIL [Concomitant]
     Dosage: UNK, QD
     Route: 048
  6. M.V.I. [Concomitant]
     Dosage: 1 DF, QD
     Route: 048
  7. VITAMIN B KOMPLEX [Concomitant]
     Dosage: 1 DF, QD
     Route: 048
  8. VITAMIN D [Concomitant]
     Dosage: 1 DF, QD
     Route: 048

REACTIONS (3)
  - HYPERTENSION [None]
  - INTENTIONAL DRUG MISUSE [None]
  - STRESS [None]
